FAERS Safety Report 6406350-1 (Version None)
Quarter: 2009Q4

REPORT INFORMATION
  Report Type: 
  Country: None (occurrence: None)
  Receive Date: 20091019
  Receipt Date: 20091015
  Transmission Date: 20100525
  Serious: Yes (Life-Threatening, Other)
  Sender: FDA-Public Use
  Company Number: PHMT2007CA00852

PATIENT
  Sex: Male

DRUGS (2)
  1. SANDOSTATIN LAR [Suspect]
     Indication: NEUROENDOCRINE TUMOUR
     Dosage: 30 MG EVERY 4 WEEKS
     Route: 030
     Dates: start: 20070109
  2. SANDOSTATIN LAR [Suspect]
     Dosage: 20 MG EVERY 2 WEEKS

REACTIONS (19)
  - ABDOMINAL PAIN [None]
  - ASTHENIA [None]
  - CEREBROVASCULAR ACCIDENT [None]
  - CHILLS [None]
  - DEPRESSION [None]
  - DRUG INEFFECTIVE [None]
  - FEELING COLD [None]
  - FEELING HOT [None]
  - GASTROINTESTINAL DISORDER [None]
  - HAEMATURIA [None]
  - HEADACHE [None]
  - HYPERHIDROSIS [None]
  - LIVER OPERATION [None]
  - MALAISE [None]
  - METASTASES TO LIVER [None]
  - NEOPLASM PROGRESSION [None]
  - PYREXIA [None]
  - RADIAL NERVE PALSY [None]
  - THROAT CANCER [None]
